FAERS Safety Report 6921048-9 (Version None)
Quarter: 2010Q3

REPORT INFORMATION
  Report Type: 
  Country: None (occurrence: None)
  Receive Date: 20100812
  Receipt Date: 20100803
  Transmission Date: 20110219
  Serious: Yes (Hospitalization)
  Sender: FDA-Public Use
  Company Number: NL-ROCHE-716901

PATIENT
  Sex: Male

DRUGS (3)
  1. BEVACIZUMAB [Suspect]
     Indication: NON-SMALL CELL LUNG CANCER
     Dosage: DATE OF MOST RECENT ADMINISTRATION: 15 JULY 2010. ACTUAL DOSE GIVEN: 1200 MG
     Route: 065
     Dates: start: 20100624
  2. CARBOPLATIN [Suspect]
     Indication: NON-SMALL CELL LUNG CANCER
     Dosage: DATE OF MOST RECENT ADMINISTRATION: 15 JULY 2010. ACTUAL DOSE GIVEN: 770 MG
     Route: 065
     Dates: start: 20100624
  3. PACLITAXEL [Suspect]
     Indication: NON-SMALL CELL LUNG CANCER
     Dosage: DATE OF MOST RECENT ADMINISTRATION: 15 JULY 2010. ACTUAL DOSE GIVEN: 400 MG
     Route: 065
     Dates: start: 20100624

REACTIONS (2)
  - BACK PAIN [None]
  - MONOPLEGIA [None]
